FAERS Safety Report 5222352-5 (Version None)
Quarter: 2007Q1

REPORT INFORMATION
  Report Type: 
  Country: None (occurrence: None)
  Receive Date: 20070129
  Receipt Date: 20070122
  Transmission Date: 20070707
  Serious: Yes (Other)
  Sender: FDA-Public Use
  Company Number: JP-MERCK-0701USA02956

PATIENT
  Age: 15 Year
  Sex: Female

DRUGS (3)
  1. PEPCID RPD [Suspect]
     Route: 048
     Dates: start: 20061212, end: 20061218
  2. MICAFUNGIN SODIUM [Suspect]
     Route: 042
     Dates: start: 20061214, end: 20061217
  3. MEXILETINE HYDROCHLORIDE [Suspect]
     Route: 048
     Dates: start: 20061214, end: 20061218

REACTIONS (1)
  - NEUTROPHIL COUNT DECREASED [None]
